FAERS Safety Report 12788350 (Version 2)
Quarter: 2016Q4

REPORT INFORMATION
  Report Type: Spontaneous
  Country: VE (occurrence: VE)
  Receive Date: 20160928
  Receipt Date: 20161010
  Transmission Date: 20170207
  Serious: Yes (Other)
  Sender: FDA-Public Use
  Company Number: VE-PFIZER INC-2016453929

PATIENT
  Age: 2 Year
  Sex: Male
  Weight: 11.7 kg

DRUGS (8)
  1. METHOTREXATE. [Suspect]
     Active Substance: METHOTREXATE
     Indication: ACUTE LYMPHOCYTIC LEUKAEMIA
     Dosage: 40 MG/M2, DAILY (4 DOSES EVERY 30 DAYS)
     Dates: start: 20160727
  2. HIDROCORTISONA /00028601/ [Concomitant]
     Dosage: 12 MG, UNK
     Route: 037
  3. VINCRISTINA [Suspect]
     Active Substance: VINCRISTINE
     Indication: ACUTE LYMPHOCYTIC LEUKAEMIA
     Dosage: 2 MG/M2, DAILY (4 DOSES EVERY 30 DAYS)
     Dates: start: 20160727
  4. ONDANSETRON [Concomitant]
     Active Substance: ONDANSETRON
     Dosage: 0.2 MG/KG, DAILY
  5. DOXORUBICIN HCL [Suspect]
     Active Substance: DOXORUBICIN HYDROCHLORIDE
     Indication: ACUTE LYMPHOCYTIC LEUKAEMIA
     Dosage: 30 MG/M2, DAILY (2 DOSES EVERY 30 DAYS)
     Dates: start: 20160727
  6. ASPARAGINASE [Concomitant]
     Active Substance: ASPARAGINASE
     Dosage: 25000 IU/M2, DAILY
  7. CYTOSAR [Suspect]
     Active Substance: CYTARABINE
     Indication: ACUTE LYMPHOCYTIC LEUKAEMIA
     Dosage: 40 MG, UNK (3 DOSES EVERY 30 DAYS)
     Route: 037
     Dates: start: 20160727
  8. PREDNISONA [Concomitant]
     Active Substance: PREDNISONE
     Dosage: 40 MG/M2, UNK

REACTIONS (2)
  - Phlebitis [Unknown]
  - Febrile neutropenia [Unknown]

NARRATIVE: CASE EVENT DATE: 2016
